FAERS Safety Report 13890637 (Version 1)
Quarter: 2017Q3

REPORT INFORMATION
  Report Type: Spontaneous
  Country: DE (occurrence: DE)
  Receive Date: 20170822
  Receipt Date: 20170822
  Transmission Date: 20171127
  Serious: Yes (Other)
  Sender: FDA-Public Use
  Company Number: DE-BAYER-2017-154372

PATIENT
  Sex: Female

DRUGS (2)
  1. HEPARIN [Suspect]
     Active Substance: HEPARIN SODIUM
  2. ASPIRIN PROTECT 100 MG [Suspect]
     Active Substance: ASPIRIN
     Indication: MYOCARDIAL INFARCTION

REACTIONS (2)
  - Abortion [None]
  - Exposure during pregnancy [None]
